FAERS Safety Report 21731631 (Version 1)
Quarter: 2022Q4

REPORT INFORMATION
  Report Type: Spontaneous
  Country: US (occurrence: US)
  Receive Date: 20221215
  Receipt Date: 20221215
  Transmission Date: 20230113
  Serious: No
  Sender: FDA-Public Use
  Company Number: US-BoehringerIngelheim-2022-BI-208202

PATIENT
  Sex: Female

DRUGS (5)
  1. JARDIANCE [Suspect]
     Active Substance: EMPAGLIFLOZIN
     Indication: Type 2 diabetes mellitus
     Dates: start: 2017
  2. HUMALOG [Concomitant]
     Active Substance: INSULIN LISPRO
     Indication: Type 2 diabetes mellitus
  3. ATORVASTATIN [Concomitant]
     Active Substance: ATORVASTATIN
     Indication: Product used for unknown indication
  4. ATENOLOL [Concomitant]
     Active Substance: ATENOLOL
     Indication: Product used for unknown indication
  5. TOUJEO [Concomitant]
     Active Substance: INSULIN GLARGINE
     Indication: Type 2 diabetes mellitus

REACTIONS (2)
  - Drug ineffective [Not Recovered/Not Resolved]
  - Hypotension [Unknown]
